FAERS Safety Report 14267850 (Version 2)
Quarter: 2018Q1

REPORT INFORMATION
  Report Type: Report from Study
  Country: BR (occurrence: BR)
  Receive Date: 20171211
  Receipt Date: 20180103
  Transmission Date: 20180508
  Serious: Yes (Other)
  Sender: FDA-Public Use
  Company Number: PHHY2015BR120243

PATIENT
  Sex: Male
  Weight: 73 kg

DRUGS (2)
  1. HYDROXYUREA. [Suspect]
     Active Substance: HYDROXYUREA
     Indication: PRODUCT USED FOR UNKNOWN INDICATION
     Route: 065
  2. EXJADE [Suspect]
     Active Substance: DEFERASIROX
     Indication: SICKLE CELL ANAEMIA
     Dosage: 1000 MG, QD (2 TABLETS OF 500 MG)
     Route: 048
     Dates: start: 2005

REACTIONS (10)
  - Weight increased [Unknown]
  - Weight decreased [Unknown]
  - Kidney infection [Recovering/Resolving]
  - Pain [Unknown]
  - Cerebral venous thrombosis [Unknown]
  - Memory impairment [Unknown]
  - Asthenia [Unknown]
  - Malaise [Recovering/Resolving]
  - Tremor [Unknown]
  - Cardiac disorder [Unknown]
